FAERS Safety Report 8455831-8 (Version None)
Quarter: 2012Q2

REPORT INFORMATION
  Report Type: 
  Country: None (occurrence: None)
  Receive Date: 20120621
  Receipt Date: 20120613
  Transmission Date: 20120825
  Serious: Yes (Other)
  Sender: FDA-Public Use
  Company Number: ES-B.I. PHARMACEUTICALS,INC./RIDGEFIELD-2012-ES-00256ES

PATIENT
  Age: 39 Year
  Sex: Male

DRUGS (4)
  1. OMEPRAZOLE [Concomitant]
     Indication: FOREARM FRACTURE
     Route: 048
     Dates: start: 20110823, end: 20110914
  2. ENOXAPARINA [Concomitant]
     Indication: FOREARM FRACTURE
     Route: 058
     Dates: start: 20110823, end: 20110914
  3. PRADAXA [Suspect]
     Indication: FOREARM FRACTURE
     Route: 048
     Dates: start: 20110919, end: 20111003
  4. METAMIZOL [Concomitant]
     Indication: FOREARM FRACTURE
     Route: 048
     Dates: start: 20110823, end: 20110914

REACTIONS (6)
  - VOMITING [None]
  - DYSURIA [None]
  - HEPATITIS [None]
  - NAUSEA [None]
  - CHOLURIA [None]
  - JAUNDICE [None]
